FAERS Safety Report 12885047 (Version 1)
Quarter: 2016Q4

REPORT INFORMATION
  Report Type: Report from Study
  Country: US (occurrence: US)
  Receive Date: 20161026
  Receipt Date: 20161026
  Transmission Date: 20170207
  Serious: Yes (Other)
  Sender: FDA-Public Use
  Company Number: PHEH2016US027223

PATIENT
  Sex: Female

DRUGS (1)
  1. COSENTYX [Suspect]
     Active Substance: SECUKINUMAB
     Indication: PRODUCT USED FOR UNKNOWN INDICATION
     Route: 065

REACTIONS (7)
  - Ankylosing spondylitis [Unknown]
  - Myasthenia gravis [Unknown]
  - Neoplasm [Unknown]
  - Cholelithiasis [Unknown]
  - Muscular weakness [Unknown]
  - Contusion [Unknown]
  - Therapeutic response unexpected [Unknown]
